FAERS Safety Report 7222743-7 (Version None)
Quarter: 2011Q1

REPORT INFORMATION
  Report Type: 
  Country: None (occurrence: None)
  Receive Date: 20110104
  Receipt Date: 20101223
  Transmission Date: 20110831
  Serious: Yes (Other)
  Sender: FDA-Public Use
  Company Number: A0901630A

PATIENT
  Age: 46 Year
  Sex: Male

DRUGS (1)
  1. METHYLCELLULOSE (FORMULATION UNKNOWN) REGULAR (METHYLCELLULOSE) [Suspect]
     Dosage: ORAL
     Route: 048

REACTIONS (2)
  - HAEMATOCHEZIA [None]
  - MALAISE [None]
